FAERS Safety Report 11702028 (Version 1)
Quarter: 2015Q4

REPORT INFORMATION
  Report Type: Spontaneous
  Country: None (occurrence: US)
  Receive Date: 20151105
  Receipt Date: 20151105
  Transmission Date: 20160304
  Serious: No
  Sender: FDA-Public Use
  Company Number: US-MATRIXX INITIATIVES, INC.-1043801

PATIENT
  Age: 29 Year
  Sex: Female
  Weight: 77.27 kg

DRUGS (2)
  1. AUGMENTIN [Concomitant]
     Active Substance: AMOXICILLIN\CLAVULANATE POTASSIUM
  2. ZICAM EXTREME CONGESTION RELIEF [Suspect]
     Active Substance: OXYMETAZOLINE HYDROCHLORIDE
     Indication: NASAL CONGESTION
     Route: 045
     Dates: end: 20151103

REACTIONS (2)
  - Anosmia [Not Recovered/Not Resolved]
  - Ageusia [Not Recovered/Not Resolved]
